FAERS Safety Report 6423877-7 (Version None)
Quarter: 2009Q4

REPORT INFORMATION
  Report Type: 
  Country: None (occurrence: None)
  Receive Date: 20091030
  Receipt Date: 20091030
  Transmission Date: 20100525
  Serious: Yes (Hospitalization)
  Sender: FDA-Public Use
  Company Number: None

PATIENT
  Age: 61 Year
  Sex: Male
  Weight: 77.1 kg

DRUGS (2)
  1. LITHIUM [Suspect]
     Indication: BIPOLAR I DISORDER
     Dosage: 300 MG BID PO
     Route: 048
     Dates: start: 19990426, end: 20081015
  2. METOPROLOL TARTRATE [Suspect]
     Indication: HYPERTENSION
     Dosage: 25 MG BID PO
     Route: 048
     Dates: start: 20001231

REACTIONS (3)
  - BRADYCARDIA [None]
  - HYPOTENSION [None]
  - LOSS OF CONSCIOUSNESS [None]
